FAERS Safety Report 21664101 (Version 3)
Quarter: 2022Q4

REPORT INFORMATION
  Report Type: Other
  Country: US (occurrence: None)
  Receive Date: 20221130
  Receipt Date: 20221202
  Transmission Date: 20230113
  Serious: No
  Sender: FDA-Public Use
  Company Number: US-ROCHE-3227548

PATIENT
  Age: 61 Year
  Sex: Female
  Weight: 90.800 kg

DRUGS (2)
  1. OCREVUS [Suspect]
     Active Substance: OCRELIZUMAB
     Indication: Multiple sclerosis
     Dosage: 2019-04-18, 2022-05-26, 2021-11-24 ,2021-05-27,2020-10-21,2019-10-22, 2019-05-06 2020-04-2200: DATE
     Route: 042
     Dates: start: 20190418
  2. OCREVUS [Suspect]
     Active Substance: OCRELIZUMAB
     Indication: Relapsing multiple sclerosis

REACTIONS (1)
  - COVID-19 [Recovered/Resolved]

NARRATIVE: CASE EVENT DATE: 20220609
